FAERS Safety Report 7944732 (Version 4)
Quarter: 2016Q3

REPORT INFORMATION
  Report Type: Report from Study
  Country: BR (occurrence: BR)
  Receive Date: 20110513
  Receipt Date: 20160831
  Transmission Date: 20161109
  Serious: Yes (Hospitalization)
  Sender: FDA-Public Use
  Company Number: BR-ASTRAZENECA-2011SE27519

PATIENT
  Age: 20566 Day
  Sex: Female
  Weight: 70 kg

DRUGS (8)
  1. TRYPTANOL [Concomitant]
     Active Substance: AMITRIPTYLINE
     Indication: PERSISTENT DEPRESSIVE DISORDER
     Route: 048
     Dates: start: 2006
  2. CAPOTEN [Concomitant]
     Active Substance: CAPTOPRIL
     Indication: HYPERTENSION
     Route: 048
     Dates: start: 2006
  3. CLORANA [Concomitant]
     Active Substance: HYDROCHLOROTHIAZIDE
     Indication: HYPERTENSION
     Route: 048
     Dates: start: 2006
  4. CHLORPROMAZINE. [Concomitant]
     Active Substance: CHLORPROMAZINE
     Indication: PERSISTENT DEPRESSIVE DISORDER
     Route: 065
     Dates: start: 20091203
  5. IBUPROFEN. [Suspect]
     Active Substance: IBUPROFEN
     Indication: RHEUMATOID ARTHRITIS
     Dosage: THREE TIMES A DAY
     Route: 048
     Dates: start: 20090529, end: 20110613
  6. NEXIUM [Suspect]
     Active Substance: ESOMEPRAZOLE MAGNESIUM
     Indication: GASTROOESOPHAGEAL REFLUX PROPHYLAXIS
     Route: 048
     Dates: start: 20090529, end: 20100503
  7. AAS [Concomitant]
     Active Substance: ASPIRIN
     Indication: CARDIOVASCULAR EVENT PROPHYLAXIS
     Route: 048
     Dates: start: 2006
  8. TEGRETOL [Concomitant]
     Active Substance: CARBAMAZEPINE
     Indication: PERSISTENT DEPRESSIVE DISORDER
     Route: 048
     Dates: start: 2006

REACTIONS (1)
  - Labile hypertension [Recovered/Resolved]

NARRATIVE: CASE EVENT DATE: 20100204
